FAERS Safety Report 4688018-5 (Version None)
Quarter: 2005Q2

REPORT INFORMATION
  Report Type: 
  Country: None (occurrence: None)
  Receive Date: 20050610
  Receipt Date: 20050602
  Transmission Date: 20051028
  Serious: Yes (Other)
  Sender: FDA-Public Use
  Company Number: 2005UW08423

PATIENT
  Age: 41 Year
  Sex: Male

DRUGS (5)
  1. SEROQUEL [Suspect]
     Indication: MENTAL DISORDER
     Route: 048
     Dates: start: 20050101
  2. WELLBUTRIN XL [Suspect]
     Indication: DEPRESSION
     Route: 048
     Dates: start: 20050101
  3. RISPERDAL [Concomitant]
  4. KLONOPIN [Concomitant]
  5. PAXIL [Concomitant]
     Indication: MENTAL DISORDER
     Route: 048
     Dates: start: 19960101, end: 20050101

REACTIONS (8)
  - ANGER [None]
  - CRYING [None]
  - DEPRESSION [None]
  - INTENTIONAL SELF-INJURY [None]
  - LACERATION [None]
  - POISONING [None]
  - PSYCHOTIC DISORDER [None]
  - SUICIDE ATTEMPT [None]
